FAERS Safety Report 15277290 (Version 1)
Quarter: 2018Q3

REPORT INFORMATION
  Report Type: Spontaneous
  Country: US (occurrence: US)
  Receive Date: 20180814
  Receipt Date: 20180814
  Transmission Date: 20181010
  Serious: Yes (Life-Threatening)
  Sender: FDA-Public Use
  Company Number: US-ANIPHARMA-2018-US-012673

PATIENT
  Age: 62 Year
  Sex: Male

DRUGS (2)
  1. AMIODARONE [Suspect]
     Active Substance: AMIODARONE
     Indication: ATRIAL FIBRILLATION
  2. FLUCONAZOLE (NON?SPECIFIC) [Suspect]
     Active Substance: FLUCONAZOLE
     Indication: CANDIDA INFECTION

REACTIONS (3)
  - Drug interaction [Unknown]
  - Acute respiratory distress syndrome [Unknown]
  - Pulmonary alveolar haemorrhage [Unknown]
